FAERS Safety Report 5056511-1 (Version None)
Quarter: 2006Q2

REPORT INFORMATION
  Report Type: 
  Country: None (occurrence: None)
  Receive Date: 20060616
  Receipt Date: 20060426
  Transmission Date: 20061013
  Serious: No
  Sender: FDA-Public Use
  Company Number: 2006US001077

PATIENT
  Age: 66 Year
  Sex: Female

DRUGS (6)
  1. VESICARE [Suspect]
     Indication: DYSURIA
     Dosage: 5 MG, ORAL
     Route: 048
  2. TENORMIN [Concomitant]
  3. MAXIDEX [Concomitant]
  4. ESTRACE [Concomitant]
  5. ACIPHEX [Concomitant]
  6. LEVAQUIN [Concomitant]

REACTIONS (3)
  - CONSTIPATION [None]
  - DYSURIA [None]
  - VISION BLURRED [None]
